FAERS Safety Report 7622836-6 (Version None)
Quarter: 2011Q3

REPORT INFORMATION
  Report Type: 
  Country: None (occurrence: None)
  Receive Date: 20110701
  Receipt Date: 20100721
  Transmission Date: 20111222
  Serious: Yes (Other)
  Sender: FDA-Public Use
  Company Number: 7011794

PATIENT
  Age: 40 Year
  Sex: Female
  Weight: 73 kg

DRUGS (2)
  1. GLIPIZIDE [Concomitant]
  2. REBIF [Suspect]
     Indication: MULTIPLE SCLEROSIS
     Dosage: 44 MCG, 3 IN 1 WK, SUBCUTANEOUS
     Route: 058
     Dates: start: 20090529

REACTIONS (5)
  - HYPERTENSION [None]
  - CENTRAL NERVOUS SYSTEM LESION [None]
  - BLOOD GLUCOSE DECREASED [None]
  - HYPOTENSION [None]
  - CONVULSION [None]
